FAERS Safety Report 10625278 (Version 1)
Quarter: 2014Q4

REPORT INFORMATION
  Report Type: Spontaneous
  Country: US (occurrence: None)
  Receive Date: 20141202
  Receipt Date: 20141202
  Transmission Date: 20150529
  Serious: Yes (Other)
  Sender: FDA-Public Use
  Company Number: US-H14001-14-01660

PATIENT
  Age: 81 Year
  Sex: Male

DRUGS (3)
  1. DIGOXIN (DIGOXIN) (UNKNOWN) (DIGOXIN) [Suspect]
     Active Substance: DIGOXIN
     Indication: PRODUCT USED FOR UNKNOWN INDICATION
  2. WARFARIN (WARFARIN)(UNKNOWN)(WARFARIN) [Suspect]
     Active Substance: WARFARIN
     Indication: PRODUCT USED FOR UNKNOWN INDICATION
  3. AMIODARONE (AMIODARONE) (UNKNOWN) [Suspect]
     Active Substance: AMIODARONE
     Indication: PRODUCT USED FOR UNKNOWN INDICATION

REACTIONS (6)
  - Macular degeneration [None]
  - Cataract [None]
  - Drug interaction [None]
  - Toxicity to various agents [None]
  - Optic neuropathy [None]
  - Cerebral infarction [None]
